FAERS Safety Report 8850650 (Version 1)
Quarter: 2012Q4

REPORT INFORMATION
  Report Type: 
  Country: FR (occurrence: FR)
  Receive Date: 20121019
  Receipt Date: 20121019
  Transmission Date: 20130627
  Serious: Yes (Life-Threatening, Hospitalization)
  Sender: FDA-Public Use
  Company Number: FR-ASTRAZENECA-2012SE79276

PATIENT
  Age: 59 Year
  Sex: Female

DRUGS (5)
  1. XEROQUEL [Suspect]
     Route: 048
     Dates: start: 201205, end: 20120725
  2. DEPAKOTE [Concomitant]
  3. FENOFIBRATE [Concomitant]
  4. AMLOR [Concomitant]
  5. LITHIUM [Concomitant]

REACTIONS (9)
  - Lipase increased [Unknown]
  - Renal failure [Recovered/Resolved]
  - Lactic acidosis [Recovered/Resolved]
  - Hyperammonaemia [Recovered/Resolved]
  - Urinary retention [Recovered/Resolved]
  - Circulatory collapse [Recovered/Resolved]
  - Dehydration [Unknown]
  - Prothrombin time shortened [Unknown]
  - Transaminases increased [Unknown]
